FAERS Safety Report 11870677 (Version 1)
Quarter: 2015Q4

REPORT INFORMATION
  Report Type: Spontaneous
  Country: US (occurrence: None)
  Receive Date: 20151223
  Receipt Date: 20151223
  Transmission Date: 20160305
  Serious: Yes (Hospitalization)
  Sender: FDA-Public Use
  Company Number: None

PATIENT
  Age: 73 Year
  Sex: Male
  Weight: 114 kg

DRUGS (8)
  1. TRADJENTA [Suspect]
     Active Substance: LINAGLIPTIN
     Indication: TYPE 2 DIABETES MELLITUS
     Dosage: FEW WEEKS
  2. METFORMIN [Concomitant]
     Active Substance: METFORMIN HYDROCHLORIDE
  3. IBUPROFEN. [Concomitant]
     Active Substance: IBUPROFEN
  4. LEVOTHYROXINE. [Concomitant]
     Active Substance: LEVOTHYROXINE
  5. POTASSIUM CHLORIDE. [Concomitant]
     Active Substance: POTASSIUM CHLORIDE
  6. NIACIN. [Concomitant]
     Active Substance: NIACIN
  7. GLIPIZIDE. [Concomitant]
     Active Substance: GLIPIZIDE
  8. LASIX [Concomitant]
     Active Substance: FUROSEMIDE

REACTIONS (4)
  - Jaundice [None]
  - Blood creatinine increased [None]
  - Hypotension [None]
  - Hepatocellular injury [None]

NARRATIVE: CASE EVENT DATE: 20151117
